FAERS Safety Report 9859214 (Version 2)
Quarter: 2014Q1

REPORT INFORMATION
  Report Type: Spontaneous
  Country: BR (occurrence: BR)
  Receive Date: 20140131
  Receipt Date: 20140219
  Transmission Date: 20141002
  Serious: Yes (Hospitalization)
  Sender: FDA-Public Use
  Company Number: BR-BRISTOL-MYERS SQUIBB COMPANY-20089777

PATIENT
  Age: 38 Year
  Sex: Male

DRUGS (3)
  1. ONGLYZA TABS 5 MG [Suspect]
     Dosage: 1 TABLET (5MG) DAILY FOR ONE YEAR, 2 YEARS PRIOR TO THIS REPORT ?RESTARTED IN JAN14
     Route: 048
  2. GLIFAGE [Concomitant]
  3. DIOVAN [Concomitant]

REACTIONS (1)
  - Erysipelas [Recovering/Resolving]
